FAERS Safety Report 10731582 (Version 2)
Quarter: 2015Q1

REPORT INFORMATION
  Report Type: Spontaneous
  Country: PL (occurrence: PL)
  Receive Date: 20150123
  Receipt Date: 20150306
  Transmission Date: 20150721
  Serious: Yes (Death)
  Sender: FDA-Public Use
  Company Number: PL-ROCHE-1524174

PATIENT
  Age: 52 Year
  Sex: Male

DRUGS (2)
  1. INTERFERON ALFA-2A [Suspect]
     Active Substance: INTERFERON ALFA-2A
     Indication: RENAL CANCER METASTATIC
     Dosage: 6 MILLION IU
     Route: 058
     Dates: start: 200905, end: 201010
  2. AVASTIN [Suspect]
     Active Substance: BEVACIZUMAB
     Indication: RENAL CANCER METASTATIC
     Route: 065
     Dates: start: 200905, end: 201010

REACTIONS (1)
  - Disease progression [Fatal]
